FAERS Safety Report 8163903-0 (Version None)
Quarter: 2012Q1

REPORT INFORMATION
  Report Type: 
  Country: None (occurrence: None)
  Receive Date: 20120224
  Receipt Date: 20120213
  Transmission Date: 20120608
  Serious: Yes (Other)
  Sender: FDA-Public Use
  Company Number: PHHY2012JP015064

PATIENT
  Age: 59 Year
  Sex: Male

DRUGS (2)
  1. PREDNISOLONE [Concomitant]
     Indication: COLITIS ULCERATIVE
     Dosage: 6 MG, UNK
  2. GLEEVEC [Suspect]
     Indication: GASTROINTESTINAL STROMAL TUMOUR
     Dosage: 400 MG, UNK
     Route: 048

REACTIONS (3)
  - CYTOMEGALOVIRUS COLITIS [None]
  - COLITIS ULCERATIVE [None]
  - CYTOMEGALOVIRUS OESOPHAGITIS [None]
